FAERS Safety Report 18744941 (Version 1)
Quarter: 2021Q1

REPORT INFORMATION
  Report Type: Report from Study
  Country: SE (occurrence: SE)
  Receive Date: 20210115
  Receipt Date: 20210115
  Transmission Date: 20210419
  Serious: Yes (Hospitalization, Other)
  Sender: FDA-Public Use
  Company Number: NVSC2021SE004440

PATIENT
  Age: 6 Year
  Sex: Male
  Weight: 18 kg

DRUGS (3)
  1. DABRAFENIB [Suspect]
     Active Substance: DABRAFENIB
     Dosage: 100 MG, QD
     Route: 048
     Dates: start: 20200520, end: 20200616
  2. MINIRIN [Concomitant]
     Active Substance: DESMOPRESSIN ACETATE
     Indication: DIABETES INSIPIDUS
     Dosage: 0.2 MG, QD
     Route: 065
     Dates: start: 20151126, end: 20200506
  3. DABRAFENIB [Suspect]
     Active Substance: DABRAFENIB
     Indication: NEURODEGENERATIVE DISORDER
     Dosage: 100 MG
     Route: 048
     Dates: start: 20200226, end: 20200504

REACTIONS (11)
  - Seizure [Unknown]
  - Inflammatory marker increased [Recovered/Resolved]
  - Anaemia [Recovered/Resolved]
  - Pyrexia [Recovered/Resolved]
  - Otitis media acute [Recovered/Resolved]
  - Lethargy [Unknown]
  - Fatigue [Unknown]
  - Urinary tract infection [Recovering/Resolving]
  - Inflammatory marker increased [Recovered/Resolved]
  - Mastoiditis [Recovering/Resolving]
  - C-reactive protein increased [Unknown]

NARRATIVE: CASE EVENT DATE: 20200430
